FAERS Safety Report 4757743-X (Version None)
Quarter: 2005Q3

REPORT INFORMATION
  Report Type: 
  Country: None (occurrence: None)
  Receive Date: 20050830
  Receipt Date: 20050819
  Transmission Date: 20060218
  Serious: Yes (Hospitalization)
  Sender: FDA-Public Use
  Company Number: 2005JP001511

PATIENT
  Age: 66 Year
  Sex: Male
  Weight: 43.2 kg

DRUGS (4)
  1. PROGRAF [Suspect]
     Indication: RHEUMATOID ARTHRITIS
     Dosage: 2.00 MG, UID/QD, ORAL
     Route: 048
     Dates: start: 20050601, end: 20050701
  2. PREDNISOLONE [Concomitant]
  3. METHYCOBAL (MECOBALAMIN) [Concomitant]
  4. MOBIC [Concomitant]

REACTIONS (1)
  - MYOCARDIAL INFARCTION [None]
